FAERS Safety Report 23030797 (Version 1)
Quarter: 2023Q4

REPORT INFORMATION
  Report Type: Spontaneous
  Country: FR (occurrence: FR)
  Receive Date: 20231005
  Receipt Date: 20231005
  Transmission Date: 20240109
  Serious: Yes (Other)
  Sender: FDA-Public Use
  Company Number: FR-AFSSAPS-MA2023002372

PATIENT
  Age: 87 Year
  Sex: Female

DRUGS (1)
  1. AZITHROMYCIN ANHYDROUS [Suspect]
     Active Substance: AZITHROMYCIN ANHYDROUS
     Indication: Tooth infection
     Dosage: 500 MILLIGRAM (LA PATIENTE A PRIS 250MG D^AZITHROMYCINE MATIN ET SOIR DU 11/09 AU 14/09. OR LE SCH?M
     Route: 048
     Dates: start: 20230911

REACTIONS (3)
  - Palpitations [Recovered/Resolved]
  - Dizziness [Recovered/Resolved]
  - Wrong schedule [Recovered/Resolved]

NARRATIVE: CASE EVENT DATE: 20230911
